FAERS Safety Report 4981511-7 (Version None)
Quarter: 2006Q2

REPORT INFORMATION
  Report Type: 
  Country: None (occurrence: None)
  Receive Date: 20060424
  Receipt Date: 20050117
  Transmission Date: 20061013
  Serious: Yes (Hospitalization)
  Sender: FDA-Public Use
  Company Number: US-MERCK-0501USA02984

PATIENT
  Age: 80 Year
  Sex: Female
  Weight: 68 kg

DRUGS (20)
  1. VIOXX [Suspect]
     Indication: ARTHRITIS
     Route: 048
     Dates: start: 20000101, end: 20040101
  2. VITA C [Concomitant]
     Route: 065
  3. CALCIUM (UNSPECIFIED) [Concomitant]
     Route: 065
  4. DIPHENHYDRAMINE HYDROCHLORIDE [Concomitant]
     Route: 065
  5. CLARITIN [Concomitant]
     Route: 065
  6. PREMPRO [Concomitant]
     Route: 065
  7. KLORVESS GRANULES AND LIQUID [Concomitant]
     Route: 065
  8. COZAAR [Concomitant]
     Route: 065
  9. LASIX [Concomitant]
     Route: 065
  10. PRILOSEC [Concomitant]
     Route: 065
  11. NORVASC [Concomitant]
     Route: 065
  12. CIPRO [Concomitant]
     Route: 065
  13. ANTIVERT [Concomitant]
     Route: 065
  14. ASPIRIN [Concomitant]
     Route: 065
  15. LIPITOR [Concomitant]
     Route: 065
  16. NORVASC [Concomitant]
     Route: 065
  17. TYLENOL (CAPLET) [Concomitant]
     Route: 065
  18. NITROGLYCERIN [Concomitant]
     Route: 065
  19. PLAVIX [Concomitant]
     Route: 065
  20. PEPCID [Concomitant]
     Route: 065

REACTIONS (7)
  - ANGINA PECTORIS [None]
  - ANGINA UNSTABLE [None]
  - CHEST PAIN [None]
  - CORONARY ARTERY SURGERY [None]
  - DEPRESSION [None]
  - HYPERLIPIDAEMIA [None]
  - HYPERTENSION [None]
